FAERS Safety Report 21198779 (Version 9)
Quarter: 2022Q4

REPORT INFORMATION
  Report Type: Report from Study
  Country: None (occurrence: CA)
  Receive Date: 20220811
  Receipt Date: 20221103
  Transmission Date: 20230113
  Serious: Yes (Other)
  Sender: FDA-Public Use
  Company Number: CA-AKCEA THERAPEUTICS, INC.-2022IS003630

PATIENT
  Age: 84 Year
  Sex: Female
  Weight: 73.182 kg

DRUGS (20)
  1. TEGSEDI [Suspect]
     Active Substance: INOTERSEN SODIUM
     Indication: Hereditary neuropathic amyloidosis
     Route: 058
     Dates: start: 20210305
  2. DEVICE [Suspect]
     Active Substance: DEVICE
  3. TEGSEDI [Suspect]
     Active Substance: INOTERSEN SODIUM
     Route: 058
  4. TEGSEDI [Suspect]
     Active Substance: INOTERSEN SODIUM
     Route: 058
  5. TYLENOL ARTHRITIS PAIN [Concomitant]
     Active Substance: ACETAMINOPHEN
     Route: 048
     Dates: start: 2019
  6. MELOXICAM [Concomitant]
     Active Substance: MELOXICAM
     Route: 048
     Dates: start: 2019, end: 202112
  7. MELOXICAM [Concomitant]
     Active Substance: MELOXICAM
     Route: 048
     Dates: start: 2019
  8. CHLORTHALIDONE [Concomitant]
     Active Substance: CHLORTHALIDONE
     Route: 048
     Dates: start: 2019
  9. CHLORTHALIDONE [Concomitant]
     Active Substance: CHLORTHALIDONE
     Route: 065
  10. NEXIUM [Concomitant]
     Active Substance: ESOMEPRAZOLE MAGNESIUM
     Route: 065
  11. EURO-FER [Concomitant]
     Route: 065
  12. ASPIRIN [Concomitant]
     Active Substance: ASPIRIN
     Route: 065
  13. CANDESARTAN [Concomitant]
     Active Substance: CANDESARTAN
     Route: 065
  14. CANDESARTAN [Concomitant]
     Active Substance: CANDESARTAN
     Route: 065
  15. CADUET [Concomitant]
     Active Substance: AMLODIPINE BESYLATE\ATORVASTATIN CALCIUM
     Route: 065
  16. CADUET [Concomitant]
     Active Substance: AMLODIPINE BESYLATE\ATORVASTATIN CALCIUM
     Route: 065
  17. EZETIMIBE [Concomitant]
     Active Substance: EZETIMIBE
     Route: 065
  18. MELOXICAM [Concomitant]
     Active Substance: MELOXICAM
     Route: 065
  19. JARDIANCE [Concomitant]
     Active Substance: EMPAGLIFLOZIN
     Route: 048
  20. FAMOTIDINE [Concomitant]
     Active Substance: FAMOTIDINE
     Route: 065

REACTIONS (45)
  - Glomerular filtration rate decreased [Not Recovered/Not Resolved]
  - Renal impairment [Unknown]
  - Haemoglobin decreased [Recovered/Resolved]
  - Red cell distribution width increased [Not Recovered/Not Resolved]
  - Blood creatinine increased [Not Recovered/Not Resolved]
  - Hypochromasia [Unknown]
  - Microcytosis [Unknown]
  - Anisocytosis [Unknown]
  - Creatinine urine decreased [Recovered/Resolved]
  - Decreased activity [Unknown]
  - Diastolic dysfunction [Unknown]
  - Elliptocytosis [Unknown]
  - Hypoaesthesia [Unknown]
  - Musculoskeletal discomfort [Unknown]
  - Neurological symptom [Unknown]
  - Neuropathy peripheral [Unknown]
  - Polychromasia [Unknown]
  - Red blood cell analysis abnormal [Unknown]
  - Red blood cell burr cells present [Unknown]
  - Red blood cell target cells present [Unknown]
  - Urine albumin/creatinine ratio increased [Not Recovered/Not Resolved]
  - Ventricular remodelling [Unknown]
  - Vitamin A decreased [Unknown]
  - Weight increased [Unknown]
  - Dyspnoea [Recovered/Resolved]
  - Protein urine present [Not Recovered/Not Resolved]
  - Back pain [Not Recovered/Not Resolved]
  - Diarrhoea [Unknown]
  - Helicobacter infection [Unknown]
  - Pruritus [Unknown]
  - Rash erythematous [Unknown]
  - Cough [Not Recovered/Not Resolved]
  - Calculus bladder [Unknown]
  - Swelling [Unknown]
  - Neck pain [Unknown]
  - Oropharyngeal pain [Unknown]
  - Headache [Unknown]
  - Injection site pruritus [Unknown]
  - Injection site pruritus [Unknown]
  - Injection site bruising [Not Recovered/Not Resolved]
  - Abdominal discomfort [Unknown]
  - Magnetic resonance imaging abnormal [Unknown]
  - Pain in extremity [Unknown]
  - Memory impairment [Unknown]
  - Blood pressure increased [Unknown]

NARRATIVE: CASE EVENT DATE: 20220602
